FAERS Safety Report 8370205-6 (Version None)
Quarter: 2012Q2

REPORT INFORMATION
  Report Type: 
  Country: None (occurrence: None)
  Receive Date: 20120518
  Receipt Date: 20120507
  Transmission Date: 20120825
  Serious: Yes (Other)
  Sender: FDA-Public Use
  Company Number: FR-ELI_LILLY_AND_COMPANY-FR201205001961

PATIENT
  Sex: Female

DRUGS (3)
  1. ALIMTA [Suspect]
     Indication: LUNG NEOPLASM MALIGNANT
     Dosage: 39.28 MG, UNKNOWN
     Route: 042
     Dates: start: 20120223
  2. CARBOPLATIN [Concomitant]
     Indication: LUNG NEOPLASM MALIGNANT
     Dosage: 25.23 MG, UNKNOWN
     Route: 065
     Dates: start: 20120223, end: 20120223
  3. IRESSA [Concomitant]
     Dosage: 250 G, QD

REACTIONS (3)
  - CHOLESTASIS [None]
  - HEPATOCELLULAR INJURY [None]
  - RASH [None]
